FAERS Safety Report 8506639-6 (Version None)
Quarter: 2012Q3

REPORT INFORMATION
  Report Type: 
  Country: None (occurrence: None)
  Receive Date: 20120712
  Receipt Date: 20120710
  Transmission Date: 20120928
  Serious: No
  Sender: FDA-Public Use
  Company Number: US-PFIZER INC-2012166136

PATIENT
  Age: 84 Year
  Sex: Female
  Weight: 67.574 kg

DRUGS (8)
  1. GABAPENTIN [Suspect]
     Dosage: 600 MG, UNK
  2. GABAPENTIN [Suspect]
     Dosage: 300 MG, 3X/DAY, 4 CAPSULES
  3. CALCIUM CARBONATE [Suspect]
     Dosage: 500 MG, DAILY
  4. PREMARIN [Concomitant]
     Dosage: UNK
  5. MULTIVITAMIN [Suspect]
     Indication: VITAMIN SUPPLEMENTATION
     Dosage: UNK,DAILY
     Dates: start: 20120101, end: 20120101
  6. MULTI-VITAMINS [Concomitant]
     Indication: VITAMIN SUPPLEMENTATION
     Dosage: UNK
     Dates: end: 20120101
  7. HYDRODIURIL [Concomitant]
     Dosage: 25 MG, UNK
  8. NADOLOL [Concomitant]
     Dosage: UNK

REACTIONS (3)
  - DIARRHOEA [None]
  - DRUG DISPENSING ERROR [None]
  - NASOPHARYNGITIS [None]
